FAERS Safety Report 5403058-6 (Version None)
Quarter: 2007Q3

REPORT INFORMATION
  Report Type: 
  Country: None (occurrence: None)
  Receive Date: 20070801
  Receipt Date: 20070723
  Transmission Date: 20080115
  Serious: Yes (Hospitalization)
  Sender: FDA-Public Use
  Company Number: CHWYE071123JUL07

PATIENT
  Age: 62 Year
  Sex: Male

DRUGS (2)
  1. EFFEXOR [Suspect]
     Indication: DEPRESSION
     Route: 048
     Dates: start: 20061101, end: 20070522
  2. SAVARINE [Interacting]
     Indication: MALARIA PROPHYLAXIS
     Dates: start: 20070507, end: 20070522

REACTIONS (8)
  - BLOOD ANTIDIURETIC HORMONE ABNORMAL [None]
  - CONFUSIONAL STATE [None]
  - DRUG INTERACTION [None]
  - EPILEPSY [None]
  - HALLUCINATION, AUDITORY [None]
  - HYPONATRAEMIA [None]
  - MALAISE [None]
  - THIRST [None]
